FAERS Safety Report 9098768 (Version 1)
Quarter: 2013Q1

REPORT INFORMATION
  Report Type: Spontaneous
  Country: GB (occurrence: GB)
  Receive Date: 20130213
  Receipt Date: 20130213
  Transmission Date: 20140127
  Serious: Yes (Hospitalization, Other)
  Sender: FDA-Public Use
  Company Number: GB-PFIZER INC-2013033773

PATIENT
  Age: 45 Year
  Sex: Female

DRUGS (3)
  1. PREGABALIN [Suspect]
     Indication: CLUSTER HEADACHE
     Route: 048
     Dates: start: 20130111, end: 20130116
  2. TRIMEPRAZINE [Concomitant]
  3. ZOLMITRIPTAN [Concomitant]

REACTIONS (1)
  - Seizure like phenomena [Recovered/Resolved]
